FAERS Safety Report 10179845 (Version 1)
Quarter: 2014Q2

REPORT INFORMATION
  Report Type: Spontaneous
  Country: US (occurrence: None)
  Receive Date: 20140425
  Receipt Date: 20140425
  Transmission Date: 20141212
  Serious: No
  Sender: FDA-Public Use
  Company Number: AP356-00541-SPO-US

PATIENT
  Sex: Female

DRUGS (1)
  1. BELVIQ (LORCASERIN HYDROCHLORIDE) [Suspect]
     Route: 048

REACTIONS (3)
  - Hypotension [None]
  - Constipation [None]
  - Dizziness [None]
